FAERS Safety Report 4649165-7 (Version None)
Quarter: 2005Q2

REPORT INFORMATION
  Report Type: 
  Country: None (occurrence: None)
  Receive Date: 20050427
  Receipt Date: 20050412
  Transmission Date: 20051028
  Serious: Yes (Death, Hospitalization)
  Sender: FDA-Public Use
  Company Number: USA050393146

PATIENT
  Age: 44 Year
  Sex: Female

DRUGS (3)
  1. CYMBALTA [Suspect]
     Indication: MAJOR DEPRESSION
  2. LITHIUM [Concomitant]
  3. HORMONE REPLACEMENT THERAPY [Concomitant]

REACTIONS (6)
  - DEPRESSION [None]
  - INTENTIONAL MISUSE [None]
  - MULTIPLE DRUG OVERDOSE [None]
  - PARANOIA [None]
  - PSYCHOTIC DISORDER [None]
  - SUICIDAL IDEATION [None]
